FAERS Safety Report 5486083-9 (Version None)
Quarter: 2007Q4

REPORT INFORMATION
  Report Type: 
  Country: None (occurrence: None)
  Receive Date: 20071012
  Receipt Date: 20070907
  Transmission Date: 20080405
  Serious: Yes (Other)
  Sender: FDA-Public Use
  Company Number: STI-2007-01522

PATIENT
  Age: 49 Year
  Sex: Female

DRUGS (3)
  1. BETAMETHASONE VALERATE [Suspect]
     Indication: RASH
     Dosage: TOPICAL
     Route: 061
  2. CORTICOSTEROIDS (CORTICOSTEROIDS) [Suspect]
     Indication: RASH
     Dosage: INTRAMUSCULAR
     Route: 030
  3. CORTICOSTEROIDS (CORTICOSTEROIDS) [Suspect]
     Indication: RASH
     Dosage: ORAL
     Route: 048

REACTIONS (4)
  - BURNING SENSATION [None]
  - DRUG DEPENDENCE [None]
  - DRUG WITHDRAWAL SYNDROME [None]
  - ERYTHEMA [None]
